FAERS Safety Report 18860633 (Version 2)
Quarter: 2021Q2

REPORT INFORMATION
  Report Type: Spontaneous
  Country: CZ (occurrence: CZ)
  Receive Date: 20210208
  Receipt Date: 20210624
  Transmission Date: 20210717
  Serious: Yes (Other)
  Sender: FDA-Public Use
  Company Number: CZ-MYLANLABS-2020M1100477

PATIENT
  Age: 48 Year
  Sex: Female

DRUGS (8)
  1. PACLITAXEL. [Suspect]
     Active Substance: PACLITAXEL
     Indication: HEPATIC CANCER
     Dosage: 3 CYCLES
     Route: 065
     Dates: start: 201506, end: 201508
  2. CISPLATIN. [Suspect]
     Active Substance: CISPLATIN
     Indication: HEPATIC CANCER
     Dosage: UNK
  3. CISPLATIN. [Suspect]
     Active Substance: CISPLATIN
     Indication: NEUROENDOCRINE TUMOUR
     Dosage: 3 CYCLES
     Route: 065
     Dates: start: 201504, end: 201506
  4. IRINOTECAN [Concomitant]
     Active Substance: IRINOTECAN
     Dosage: UNK
     Dates: start: 201509, end: 201611
  5. PACLITAXEL. [Suspect]
     Active Substance: PACLITAXEL
     Indication: NEUROENDOCRINE TUMOUR
  6. ETOPOSIDE. [Suspect]
     Active Substance: ETOPOSIDE
     Indication: HEPATIC CANCER
     Dosage: UNK
  7. PACLITAXEL. [Suspect]
     Active Substance: PACLITAXEL
     Indication: NEUROENDOCRINE CARCINOMA
     Dosage: UNK
     Dates: start: 201506, end: 201508
  8. ETOPOSIDE. [Suspect]
     Active Substance: ETOPOSIDE
     Indication: NEUROENDOCRINE TUMOUR
     Dosage: 3 CYCLES
     Route: 065
     Dates: start: 201504, end: 201506

REACTIONS (9)
  - Haemoglobin decreased [Unknown]
  - Hepatomegaly [Unknown]
  - Toxicity to various agents [Unknown]
  - Vomiting [Unknown]
  - Nausea [Unknown]
  - Myelosuppression [Unknown]
  - Drug ineffective [Unknown]
  - Dehydration [Unknown]
  - Liver disorder [Unknown]

NARRATIVE: CASE EVENT DATE: 2015
